FAERS Safety Report 10718304 (Version 1)
Quarter: 2015Q1

REPORT INFORMATION
  Report Type: Spontaneous
  Country: US (occurrence: US)
  Receive Date: 20150118
  Receipt Date: 20150118
  Transmission Date: 20150721
  Serious: Yes (Hospitalization)
  Sender: FDA-Public Use
  Company Number: US-BRISTOL-MYERS SQUIBB COMPANY-BMS-2015-000825

PATIENT
  Sex: Male

DRUGS (6)
  1. XARELTO [Concomitant]
     Active Substance: RIVAROXABAN
  2. YERVOY [Suspect]
     Active Substance: IPILIMUMAB
     Indication: METASTATIC MALIGNANT MELANOMA
     Dosage: 3 MG/KG, Q3WK
     Route: 042
     Dates: start: 20141114
  3. METOPROLOL [Concomitant]
     Active Substance: METOPROLOL
  4. OXYCODONE [Concomitant]
     Active Substance: OXYCODONE
  5. LISINOPRIL. [Concomitant]
     Active Substance: LISINOPRIL
  6. SOTALOL. [Concomitant]
     Active Substance: SOTALOL

REACTIONS (2)
  - Acute kidney injury [Unknown]
  - Deafness [Unknown]

NARRATIVE: CASE EVENT DATE: 2014
